FAERS Safety Report 5398809-3 (Version None)
Quarter: 2007Q3

REPORT INFORMATION
  Report Type: 
  Country: None (occurrence: None)
  Receive Date: 20070725
  Receipt Date: 20070725
  Transmission Date: 20080115
  Serious: Yes (Life-Threatening, Hospitalization)
  Sender: FDA-Public Use
  Company Number: None

PATIENT
  Sex: Female
  Weight: 88.4514 kg

DRUGS (2)
  1. YAZ [Suspect]
     Indication: ORAL CONTRACEPTION
     Dosage: ONCE DAILY DAILY ORAL
     Route: 048
     Dates: start: 20060601, end: 20070501
  2. LOESTRIN FE 1.5/30 [Suspect]
     Indication: ORAL CONTRACEPTION
     Dosage: ONCE DAILY DAILY ORAL
     Route: 048
     Dates: start: 20070601

REACTIONS (3)
  - BACK PAIN [None]
  - DYSPNOEA [None]
  - MUSCLE SPASMS [None]
